FAERS Safety Report 6337802-0 (Version None)
Quarter: 2009Q3

REPORT INFORMATION
  Report Type: 
  Country: None (occurrence: None)
  Receive Date: 20090902
  Receipt Date: 20090828
  Transmission Date: 20100115
  Serious: Yes (Hospitalization)
  Sender: FDA-Public Use
  Company Number: A0793087A

PATIENT
  Age: 38 Year
  Sex: Male

DRUGS (4)
  1. PROMACTA [Suspect]
     Indication: IDIOPATHIC THROMBOCYTOPENIC PURPURA
     Dosage: 75MG PER DAY
     Route: 048
     Dates: start: 20070101
  2. PROPYL-THIOURACIL [Concomitant]
  3. COUMADIN [Concomitant]
  4. UNKNOWN [Concomitant]

REACTIONS (1)
  - CEREBROVASCULAR ACCIDENT [None]
